FAERS Safety Report 7146715-6 (Version None)
Quarter: 2010Q4

REPORT INFORMATION
  Report Type: 
  Country: None (occurrence: None)
  Receive Date: 20101208
  Receipt Date: 20101124
  Transmission Date: 20110411
  Serious: Yes (Death, Hospitalization)
  Sender: FDA-Public Use
  Company Number: NL-GENENTECH-310087

PATIENT
  Sex: Female
  Weight: 64 kg

DRUGS (8)
  1. RITUXIMAB [Suspect]
     Indication: B-CELL LYMPHOMA
     Dosage: 40 MG, UNK
     Route: 042
     Dates: start: 20100927
  2. RITUXIMAB [Suspect]
     Dosage: 700 MG, UNK
     Route: 042
     Dates: start: 20101002
  3. CISPLATIN [Suspect]
     Indication: B-CELL LYMPHOMA
     Dosage: 138 MG, UNK
     Route: 042
     Dates: start: 20100928
  4. CYTARABINE [Suspect]
     Indication: B-CELL LYMPHOMA
     Dosage: 7400 MG, UNK
     Route: 042
     Dates: start: 20100929
  5. DEXAMETHASONE [Suspect]
     Indication: B-CELL LYMPHOMA
     Dosage: 160 MG, UNK
     Route: 042
     Dates: start: 20100928
  6. METHOTREXATE [Suspect]
     Indication: B-CELL LYMPHOMA
     Dosage: 5500 MG, UNK
     Route: 042
     Dates: start: 20101012
  7. CIPROXIN [Concomitant]
     Indication: PROPHYLAXIS
     Dosage: UNK
     Route: 048
  8. DI-ADRESON-F [Concomitant]
     Indication: PRODUCT USED FOR UNKNOWN INDICATION
     Dosage: 25 MG, UNK
     Route: 042
     Dates: start: 20100927

REACTIONS (1)
  - DEPRESSED LEVEL OF CONSCIOUSNESS [None]
